FAERS Safety Report 7400640-1 (Version None)
Quarter: 2011Q2

REPORT INFORMATION
  Report Type: 
  Country: None (occurrence: None)
  Receive Date: 20110407
  Receipt Date: 20110328
  Transmission Date: 20111010
  Serious: Yes (Other)
  Sender: FDA-Public Use
  Company Number: US-JNJFOC-20110311740

PATIENT
  Sex: Male
  Weight: 94.8 kg

DRUGS (3)
  1. INVEGA SUSTENNA [Suspect]
     Route: 030
  2. INVEGA SUSTENNA [Suspect]
     Indication: SCHIZOPHRENIA
     Route: 030
  3. INVEGA [Suspect]
     Indication: SCHIZOPHRENIA
     Route: 048

REACTIONS (9)
  - DRUG INEFFECTIVE [None]
  - INAPPROPRIATE AFFECT [None]
  - THINKING ABNORMAL [None]
  - HALLUCINATION, AUDITORY [None]
  - PRODUCT QUALITY ISSUE [None]
  - WEIGHT INCREASED [None]
  - DYSKINESIA [None]
  - AGITATION [None]
  - DYSPHONIA [None]
